FAERS Safety Report 6772721-7 (Version None)
Quarter: 2010Q2

REPORT INFORMATION
  Report Type: 
  Country: None (occurrence: None)
  Receive Date: 20100616
  Receipt Date: 20100609
  Transmission Date: 20101027
  Serious: Yes (Congenital Anomaly, Other)
  Sender: FDA-Public Use
  Company Number: US-CEPHALON-2010003242

PATIENT
  Sex: Female

DRUGS (3)
  1. PROVIGIL [Suspect]
     Indication: CATAPLEXY
     Route: 064
     Dates: start: 20050101
  2. DEXEDRINE [Suspect]
     Route: 064
  3. DESIPRAMINE HCL [Suspect]
     Route: 064

REACTIONS (1)
  - CARDIAC MURMUR [None]
